FAERS Safety Report 7536551-0 (Version None)
Quarter: 2011Q2

REPORT INFORMATION
  Report Type: 
  Country: None (occurrence: None)
  Receive Date: 20110609
  Receipt Date: 20110421
  Transmission Date: 20111010
  Serious: No
  Sender: FDA-Public Use
  Company Number: US-TYCO HEALTHCARE/MALLINCKRODT-T201100840

PATIENT
  Sex: Female
  Weight: 68.027 kg

DRUGS (6)
  1. CELEBREX [Concomitant]
  2. ZOLOFT [Concomitant]
  3. TRAMADOL HCL [Concomitant]
     Indication: PAIN
  4. CYMBALTA [Concomitant]
  5. HYDROCODONE BITARTRATE AND ACETAMINOPHEN [Suspect]
     Indication: PAIN
     Dosage: 10/325 MG, 2 DOSES/TABLETS TOTAL, 1 TABLET PER DOSE
     Route: 048
     Dates: start: 20110101, end: 20110102
  6. HORMONES NOS [Concomitant]
     Indication: HORMONE REPLACEMENT THERAPY

REACTIONS (4)
  - SWELLING FACE [None]
  - EYE SWELLING [None]
  - LIP SWELLING [None]
  - PRODUCT SUBSTITUTION ISSUE [None]
